FAERS Safety Report 22074118 (Version 1)
Quarter: 2023Q1

REPORT INFORMATION
  Report Type: Spontaneous
  Country: US (occurrence: US)
  Receive Date: 20230308
  Receipt Date: 20230308
  Transmission Date: 20230417
  Serious: Yes (Death, Life-Threatening, Hospitalization, Other)
  Sender: FDA-Public Use
  Company Number: US-PFIZER INC-PV202300031587

PATIENT
  Age: 79 Year
  Sex: Female

DRUGS (13)
  1. VANCOMYCIN HYDROCHLORIDE [Suspect]
     Active Substance: VANCOMYCIN HYDROCHLORIDE
     Indication: Encephalitis
     Dosage: UNK
  2. VANCOMYCIN HYDROCHLORIDE [Suspect]
     Active Substance: VANCOMYCIN HYDROCHLORIDE
     Indication: Urinary tract infection
  3. CEFEPIME HYDROCHLORIDE [Suspect]
     Active Substance: CEFEPIME HYDROCHLORIDE
     Indication: Proteus infection
     Dosage: UNK
  4. CEFEPIME HYDROCHLORIDE [Suspect]
     Active Substance: CEFEPIME HYDROCHLORIDE
     Indication: Encephalitis
  5. CIPROFLOXACIN [Suspect]
     Active Substance: CIPROFLOXACIN
     Indication: Proteus infection
     Dosage: UNK
  6. CIPROFLOXACIN [Suspect]
     Active Substance: CIPROFLOXACIN
     Indication: Encephalitis
  7. CIPROFLOXACIN [Suspect]
     Active Substance: CIPROFLOXACIN
     Indication: Urinary tract infection
  8. CEFTRIAXONE [Suspect]
     Active Substance: CEFTRIAXONE
     Indication: Encephalitis
     Dosage: UNK
  9. CEFTRIAXONE [Suspect]
     Active Substance: CEFTRIAXONE
     Indication: Urinary tract infection
  10. AMPICILLIN [Suspect]
     Active Substance: AMPICILLIN
     Indication: Encephalitis
     Dosage: UNK
  11. AMPICILLIN [Suspect]
     Active Substance: AMPICILLIN
     Indication: Urinary tract infection
  12. ACYCLOVIR [Suspect]
     Active Substance: ACYCLOVIR
     Indication: Encephalitis
     Dosage: UNK
  13. ACYCLOVIR [Suspect]
     Active Substance: ACYCLOVIR
     Indication: Urinary tract infection

REACTIONS (1)
  - Drug ineffective [Fatal]
